FAERS Safety Report 5472272-6 (Version None)
Quarter: 2007Q3

REPORT INFORMATION
  Report Type: 
  Country: None (occurrence: None)
  Receive Date: 20070927
  Receipt Date: 20070914
  Transmission Date: 20080115
  Serious: Yes (Other)
  Sender: FDA-Public Use
  Company Number: 2007US001913

PATIENT
  Age: 48 Year
  Sex: Female

DRUGS (9)
  1. VESICARE [Suspect]
     Indication: HYPERTONIC BLADDER
     Dosage: 10 MG, UID/QD, ORAL
     Route: 048
     Dates: end: 20070909
  2. DURAGESIC (FENTANLY) FOR PATCH [Concomitant]
  3. LORTAB [Concomitant]
  4. SOMA [Concomitant]
  5. GABITRIL (TIAGABINE HYDROCHLORIIDE) [Concomitant]
  6. ESZOPICLONE (ESZOPICLONE) [Concomitant]
  7. GLYCOLAX (MACROGOL) [Concomitant]
  8. CIPRO [Concomitant]
  9. AMITIZA [Concomitant]

REACTIONS (14)
  - ARTHRALGIA [None]
  - BLINDNESS TRANSIENT [None]
  - BLINDNESS UNILATERAL [None]
  - DYSPNOEA [None]
  - DYSSTASIA [None]
  - GAIT DISTURBANCE [None]
  - JOINT SWELLING [None]
  - MUSCLE SPASMS [None]
  - MUSCULOSKELETAL DISCOMFORT [None]
  - MYALGIA [None]
  - OEDEMA PERIPHERAL [None]
  - PAIN [None]
  - PAIN IN EXTREMITY [None]
  - PYREXIA [None]
